FAERS Safety Report 6236523-2 (Version None)
Quarter: 2009Q2

REPORT INFORMATION
  Report Type: 
  Country: None (occurrence: None)
  Receive Date: 20090619
  Receipt Date: 20090608
  Transmission Date: 20091009
  Serious: Yes (Hospitalization)
  Sender: FDA-Public Use
  Company Number: B0516673A

PATIENT
  Sex: Male

DRUGS (7)
  1. VALTREX [Suspect]
     Indication: HERPES ZOSTER
     Dosage: 500MG THREE TIMES PER DAY
     Route: 048
     Dates: start: 20080409, end: 20080410
  2. HARNAL [Concomitant]
     Indication: BENIGN PROSTATIC HYPERPLASIA
     Dosage: .2MG PER DAY
     Route: 048
  3. ASPIRIN [Concomitant]
     Indication: CEREBRAL INFARCTION
     Dosage: 100MG PER DAY
     Route: 048
  4. FUROSEMIDE [Concomitant]
     Dosage: 20MG PER DAY
     Route: 048
  5. ADALAT CC [Concomitant]
     Indication: HYPERTENSION
     Dosage: 60MG PER DAY
     Route: 048
  6. DIOVAN [Concomitant]
     Indication: HYPERTENSION
     Dosage: 80MG PER DAY
     Route: 048
     Dates: start: 20071207
  7. CALTAN [Concomitant]
     Indication: HYPERPARATHYROIDISM
     Dosage: 1500MG PER DAY
     Route: 048
     Dates: start: 20051201

REACTIONS (9)
  - ALTERED STATE OF CONSCIOUSNESS [None]
  - ANOREXIA [None]
  - DIARRHOEA [None]
  - DRUG TOXICITY [None]
  - DYSARTHRIA [None]
  - ENCEPHALOPATHY [None]
  - INAPPROPRIATE SCHEDULE OF DRUG ADMINISTRATION [None]
  - MONOPLEGIA [None]
  - VOMITING [None]
